FAERS Safety Report 8856298 (Version 1)
Quarter: 2012Q4

REPORT INFORMATION
  Report Type: 
  Country: US (occurrence: US)
  Receive Date: 20121023
  Receipt Date: 20121023
  Transmission Date: 20130627
  Serious: No
  Sender: FDA-Public Use
  Company Number: US-AMGEN-USASP2012057815

PATIENT
  Age: 50 Year
  Sex: Female
  Weight: 72.56 kg

DRUGS (5)
  1. ENBREL [Suspect]
     Indication: RHEUMATOID ARTHRITIS
     Dosage: 50 mg, qwk
     Route: 058
     Dates: start: 20110406
  2. CRESTOR [Concomitant]
  3. MULTIVITAMIN                       /00097801/ [Concomitant]
  4. PLAQUENIL                          /00072602/ [Concomitant]
  5. VITAMIN D /00107901/ [Concomitant]

REACTIONS (3)
  - Sinusitis [Recovered/Resolved]
  - Injection site reaction [Not Recovered/Not Resolved]
  - Injection site erythema [Not Recovered/Not Resolved]
